FAERS Safety Report 18174664 (Version 2)
Quarter: 2020Q4

REPORT INFORMATION
  Report Type: Spontaneous
  Country: US (occurrence: US)
  Receive Date: 20200820
  Receipt Date: 20201125
  Transmission Date: 20210113
  Serious: No
  Sender: FDA-Public Use
  Company Number: US-PFIZER INC-2020321422

PATIENT
  Age: 45 Year
  Sex: Male

DRUGS (1)
  1. LORBRENA [Suspect]
     Active Substance: LORLATINIB
     Indication: LUNG CARCINOMA CELL TYPE UNSPECIFIED STAGE 0
     Dosage: 50 MG, 1X/DAY (50MG ONCE DAILY)
     Dates: start: 20200720

REACTIONS (4)
  - Insomnia [Unknown]
  - Mood swings [Unknown]
  - Tumour marker increased [Recovering/Resolving]
  - Neoplasm progression [Unknown]
